FAERS Safety Report 5187604-6 (Version None)
Quarter: 2006Q4

REPORT INFORMATION
  Report Type: 
  Country: None (occurrence: None)
  Receive Date: 20061220
  Receipt Date: 20060103
  Transmission Date: 20070319
  Serious: No
  Sender: FDA-Public Use
  Company Number: US-AMGEN-US163396

PATIENT
  Age: 67 Year
  Sex: Female

DRUGS (3)
  1. ENBREL [Suspect]
     Indication: RHEUMATOID ARTHRITIS
     Route: 058
     Dates: start: 20050718
  2. METHOTREXATE [Concomitant]
     Dates: start: 20021201
  3. INFLIXIMAB [Concomitant]
     Dates: start: 20030501, end: 20050601

REACTIONS (1)
  - EOSINOPHIL COUNT INCREASED [None]
